FAERS Safety Report 16314067 (Version 3)
Quarter: 2020Q1

REPORT INFORMATION
  Report Type: Spontaneous
  Country: JP (occurrence: JP)
  Receive Date: 20190515
  Receipt Date: 20200201
  Transmission Date: 20200409
  Serious: Yes (Other)
  Sender: FDA-Public Use
  Company Number: JP-BAYER-2019-096200

PATIENT
  Age: 19 Year
  Sex: Female
  Weight: 52.7 kg

DRUGS (1)
  1. MIRENA [Suspect]
     Active Substance: LEVONORGESTREL
     Indication: DYSMENORRHOEA
     Dosage: 20 MCG/24HR, CONT
     Route: 015
     Dates: start: 20190422, end: 20190514

REACTIONS (2)
  - Chlamydial cervicitis [None]
  - Abdominal pain lower [Unknown]

NARRATIVE: CASE EVENT DATE: 20190505
